FAERS Safety Report 4820179-7 (Version None)
Quarter: 2005Q4

REPORT INFORMATION
  Report Type: 
  Country: None (occurrence: None)
  Receive Date: 20051012
  Receipt Date: 20050620
  Transmission Date: 20060501
  Serious: No
  Sender: FDA-Public Use
  Company Number: A03200501874

PATIENT
  Sex: Male

DRUGS (1)
  1. UROXATRAL [Suspect]
     Dosage: 20 MG OD - ORAL
     Route: 048
     Dates: start: 20050618

REACTIONS (1)
  - INCORRECT DOSE ADMINISTERED [None]
